FAERS Safety Report 7305221-6 (Version None)
Quarter: 2011Q1

REPORT INFORMATION
  Report Type: 
  Country: None (occurrence: None)
  Receive Date: 20110222
  Receipt Date: 20110207
  Transmission Date: 20110831
  Serious: Yes (Other)
  Sender: FDA-Public Use
  Company Number: ES-PFIZER INC-2010168265

PATIENT
  Age: 85 Year
  Sex: Female

DRUGS (9)
  1. TRANGOREX [Suspect]
     Dosage: UNKNOWN DOSE 2 TABS DAILY
     Dates: start: 20100101, end: 20101108
  2. SEGURIL [Concomitant]
     Dosage: UNK
  3. TRANGOREX [Suspect]
     Indication: ATRIAL FIBRILLATION
     Dosage: UNKNOWN DOSE THREE TIMES WEEKLY
     Route: 048
     Dates: start: 20100901, end: 20100101
  4. BISOPROLOL [Concomitant]
     Dosage: UNK
  5. LEXATIN [Concomitant]
     Dosage: UNK
  6. SINTROM [Concomitant]
     Dosage: UNK
  7. DRONEDARONE [Suspect]
     Indication: ARRHYTHMIA PROPHYLAXIS
     Dosage: 400 MG, 2X/DAY
     Route: 048
     Dates: start: 20101111
  8. SOMAZINA [Concomitant]
     Dosage: UNK
  9. ATACAND [Concomitant]
     Dosage: UNK

REACTIONS (5)
  - ATRIAL FIBRILLATION [None]
  - RENAL FAILURE [None]
  - VOMITING [None]
  - DIARRHOEA [None]
  - HEPATITIS TOXIC [None]
